FAERS Safety Report 7725315-0 (Version None)
Quarter: 2011Q3

REPORT INFORMATION
  Report Type: 
  Country: None (occurrence: None)
  Receive Date: 20110902
  Receipt Date: 20110404
  Transmission Date: 20111222
  Serious: Yes (Other)
  Sender: FDA-Public Use
  Company Number: GR-SHIRE-SPV1-2011-01155

PATIENT
  Age: 56 Year
  Sex: Female

DRUGS (1)
  1. ANAGRELIDE HYDROCHLORIDE [Suspect]
     Indication: ESSENTIAL THROMBOCYTHAEMIA
     Dosage: 0.5 MG BID/0.5MG TID
     Route: 048
     Dates: start: 20061213, end: 20101208

REACTIONS (1)
  - MYELOFIBROSIS [None]
